FAERS Safety Report 15049516 (Version 1)
Quarter: 2018Q2

REPORT INFORMATION
  Report Type: Spontaneous
  Country: US (occurrence: US)
  Receive Date: 20180622
  Receipt Date: 20180622
  Transmission Date: 20180711
  Serious: No
  Sender: FDA-Public Use
  Company Number: US-TEVA-2018-US-901468

PATIENT
  Age: 56 Year
  Sex: Female

DRUGS (1)
  1. CLONAZEPAM. [Suspect]
     Active Substance: CLONAZEPAM
     Indication: PANIC DISORDER
     Dates: start: 1993, end: 20180525

REACTIONS (3)
  - Feeling jittery [Unknown]
  - Disorientation [Unknown]
  - Headache [Unknown]

NARRATIVE: CASE EVENT DATE: 20180526
